FAERS Safety Report 6703418-7 (Version None)
Quarter: 2010Q2

REPORT INFORMATION
  Report Type: 
  Country: None (occurrence: None)
  Receive Date: 20100430
  Receipt Date: 20100419
  Transmission Date: 20101027
  Serious: No
  Sender: FDA-Public Use
  Company Number: US-ROXANE LABORATORIES, INC.-2010-RO-00438RO

PATIENT
  Age: 62 Year
  Sex: Female

DRUGS (3)
  1. LITHIUM CARBONATE [Suspect]
     Indication: BIPOLAR DISORDER
     Dosage: 900 MG
     Route: 048
     Dates: start: 19880101, end: 20100413
  2. LITHIUM CARBONATE [Suspect]
     Dosage: 600 MG
     Route: 048
     Dates: start: 20100414
  3. DEPAKOTE [Concomitant]

REACTIONS (3)
  - CHOLELITHIASIS [None]
  - DIARRHOEA [None]
  - FOAMING AT MOUTH [None]
